FAERS Safety Report 19838494 (Version 2)
Quarter: 2021Q4

REPORT INFORMATION
  Report Type: Spontaneous
  Country: US (occurrence: US)
  Receive Date: 20210916
  Receipt Date: 20211008
  Transmission Date: 20220303
  Serious: No
  Sender: FDA-Public Use
  Company Number: US-PURACAP-US-2021EPCSPO00981

PATIENT
  Age: 42 Year
  Sex: Female
  Weight: 74.8 kg

DRUGS (1)
  1. DOXYCYCLINE HYCLATE [Suspect]
     Active Substance: DOXYCYCLINE HYCLATE
     Indication: Oophoritis
     Route: 048
     Dates: start: 20210825, end: 20210902

REACTIONS (9)
  - Dizziness [Recovered/Resolved]
  - Migraine [Recovered/Resolved]
  - Aura [Recovered/Resolved]
  - Hypoaesthesia [Recovered/Resolved]
  - Photophobia [Recovered/Resolved]
  - Decreased appetite [Recovered/Resolved]
  - Diplopia [Recovered/Resolved]
  - Nausea [Recovered/Resolved]
  - Vision blurred [Recovered/Resolved]

NARRATIVE: CASE EVENT DATE: 20210101
